FAERS Safety Report 25892480 (Version 1)
Quarter: 2025Q4

REPORT INFORMATION
  Report Type: Spontaneous
  Country: US (occurrence: None)
  Receive Date: 20251007
  Receipt Date: 20251007
  Transmission Date: 20260118
  Serious: Yes (Hospitalization)
  Sender: FDA-CTU
  Company Number: None

PATIENT
  Sex: Female

DRUGS (2)
  1. RINVOQ [Suspect]
     Active Substance: UPADACITINIB
     Indication: Crohn^s disease
     Dosage: FREQUENCY : DAILY;?
     Route: 048
     Dates: start: 20250417
  2. RINVOQ [Suspect]
     Active Substance: UPADACITINIB
     Indication: Disease complication

REACTIONS (4)
  - Crohn^s disease [None]
  - Therapy interrupted [None]
  - Pelvic floor dysfunction [None]
  - Pelvic fracture [None]
